FAERS Safety Report 24354445 (Version 1)
Quarter: 2024Q3

REPORT INFORMATION
  Report Type: Spontaneous
  Country: GB (occurrence: GB)
  Receive Date: 20240923
  Receipt Date: 20240923
  Transmission Date: 20241016
  Serious: Yes (Other)
  Sender: MYLAN
  Company Number: None

PATIENT
  Age: 55 Year
  Sex: Female
  Weight: 89 kg

DRUGS (21)
  1. ATORVASTATIN [Suspect]
     Active Substance: ATORVASTATIN
     Indication: Blood cholesterol increased
     Dosage: 20 MILLIGRAM, QD
     Route: 048
     Dates: start: 20240809
  2. COTRIMOXAZOLE [Concomitant]
     Active Substance: SULFAMETHOXAZOLE\TRIMETHOPRIM
     Indication: Lower respiratory tract infection
     Dosage: 1 DOSAGE FORM, BID
     Route: 048
     Dates: start: 20240701, end: 20240715
  3. DICLOFENAC DIETHYLAMINE [Concomitant]
     Active Substance: DICLOFENAC DIETHYLAMINE
     Indication: Ill-defined disorder
     Dosage: 1 DOSAGE FORM, Q8H
     Route: 061
     Dates: start: 20240701, end: 20240731
  4. CROMOLYN SODIUM [Concomitant]
     Active Substance: CROMOLYN SODIUM
     Indication: Ill-defined disorder
     Dosage: 1 DOSAGE FORM, Q6H
     Route: 065
     Dates: start: 20240902
  5. AMOXICILLIN [Concomitant]
     Active Substance: AMOXICILLIN
     Indication: Infection
     Dosage: 1 DOSAGE FORM, Q8H
     Route: 048
     Dates: start: 20240715, end: 20240720
  6. AMOXICILLIN\CLAVULANATE POTASSIUM [Concomitant]
     Active Substance: AMOXICILLIN\CLAVULANATE POTASSIUM
     Indication: Ill-defined disorder
     Dosage: 1 DOSAGE FORM, Q8H
     Route: 048
     Dates: start: 20240729, end: 20240805
  7. RANITIDINE HYDROCHLORIDE [Concomitant]
     Active Substance: RANITIDINE HYDROCHLORIDE
     Indication: Ill-defined disorder
     Dosage: 10 MILLILITER, Q6H
     Route: 048
     Dates: start: 20240729, end: 20240810
  8. PENICILLIN V [Concomitant]
     Active Substance: PENICILLIN V
     Indication: Ill-defined disorder
     Dosage: 2 DOSAGE FORM, Q6H
     Route: 048
     Dates: start: 20240917
  9. SOLGAR VITAMIN B2 [Concomitant]
     Indication: Ill-defined disorder
     Dosage: 400 MILLIGRAM, QD
     Route: 048
     Dates: start: 20240416
  10. CALCIUM CARBONATE\CHOLECALCIFEROL [Concomitant]
     Active Substance: CALCIUM CARBONATE\CHOLECALCIFEROL
     Indication: Ill-defined disorder
     Dosage: 2 DOSAGE FORM, QD
     Route: 048
     Dates: start: 20240416
  11. Aproderm emollient [Concomitant]
     Indication: Ill-defined disorder
     Dosage: UNK (USE AS DIRECTED .ENOUGH FOR 8 WEEK SUPPLY)
     Route: 065
     Dates: start: 20240416
  12. BISACODYL [Concomitant]
     Active Substance: BISACODYL
     Indication: Constipation
     Dosage: 2 DOSAGE FORM, PM (AT NIGHT)
     Route: 065
     Dates: start: 20240416
  13. Eyeaze [Concomitant]
     Indication: Ill-defined disorder
     Dosage: UNK (USE AS DIRECTED NB REPLACES XAILIN DROPS)
     Route: 065
     Dates: start: 20240416
  14. FOLIC ACID\IRON\MINERALS\VITAMINS [Concomitant]
     Active Substance: FOLIC ACID\IRON\MINERALS\VITAMINS
     Indication: Ill-defined disorder
     Dosage: 1 DOSAGE FORM, QD
     Route: 048
     Dates: start: 20240416
  15. MIRTAZAPINE [Concomitant]
     Active Substance: MIRTAZAPINE
     Indication: Depressed mood
     Dosage: 1 DOSAGE FORM, QD
     Route: 048
     Dates: start: 20240416, end: 20240904
  16. PROGRAF [Concomitant]
     Active Substance: TACROLIMUS
     Indication: Transplant rejection
     Dosage: 1 DOSAGE FORM, BID
     Route: 048
     Dates: start: 20240416
  17. PROPRANOLOL [Concomitant]
     Active Substance: PROPRANOLOL HYDROCHLORIDE
     Indication: Migraine
     Dosage: UNK
     Route: 065
     Dates: start: 20240416
  18. FEXOFENADINE [Concomitant]
     Active Substance: FEXOFENADINE HYDROCHLORIDE
     Indication: Ill-defined disorder
     Dosage: 1 DOSAGE FORM, QD
     Route: 048
     Dates: start: 20240715
  19. PEPPERMINT OIL [Concomitant]
     Active Substance: PEPPERMINT OIL
     Indication: Ill-defined disorder
     Dosage: 1 DOSAGE FORM, Q8H
     Route: 048
     Dates: start: 20240801
  20. NEOMYCIN SULFATE [Concomitant]
     Active Substance: NEOMYCIN SULFATE
     Indication: Ill-defined disorder
     Dosage: UNK UNK, QD (APPLY DAILY)
     Route: 061
     Dates: start: 20240904
  21. SERTRALINE [Concomitant]
     Active Substance: SERTRALINE HYDROCHLORIDE
     Indication: Depressed mood
     Dosage: 1 DOSAGE FORM, QD (TAKE ONE TABLET DAILY FOR MOOD)
     Route: 065
     Dates: start: 20240904

REACTIONS (3)
  - Myalgia [Recovered/Resolved]
  - Rhabdomyolysis [Recovered/Resolved]
  - Chest pain [Recovered/Resolved]

NARRATIVE: CASE EVENT DATE: 20240917
